FAERS Safety Report 8012496-7 (Version None)
Quarter: 2011Q4

REPORT INFORMATION
  Report Type: 
  Country: None (occurrence: None)
  Receive Date: 20111229
  Receipt Date: 20111219
  Transmission Date: 20120403
  Serious: Yes (Hospitalization)
  Sender: FDA-Public Use
  Company Number: US-AMGEN-USASP2011054828

PATIENT
  Sex: Female

DRUGS (2)
  1. ENBREL [Suspect]
     Indication: OEDEMA PERIPHERAL
  2. ENBREL [Suspect]
     Indication: PSORIATIC ARTHROPATHY
     Dosage: UNK

REACTIONS (5)
  - VOMITING [None]
  - PSORIATIC ARTHROPATHY [None]
  - PUSTULAR PSORIASIS [None]
  - DEHYDRATION [None]
  - NAUSEA [None]
